FAERS Safety Report 14766846 (Version 1)
Quarter: 2018Q2

REPORT INFORMATION
  Report Type: Spontaneous
  Country: RU (occurrence: RU)
  Receive Date: 20180417
  Receipt Date: 20180417
  Transmission Date: 20180711
  Serious: Yes (Hospitalization, Other)
  Sender: FDA-Public Use
  Company Number: RU-ROCHE-2105301

PATIENT

DRUGS (8)
  1. VINCRISTINE [Suspect]
     Active Substance: VINCRISTINE
     Indication: B-CELL LYMPHOMA
     Dosage: 1 LINE OF THERAPY, 5 CYCLES
     Route: 065
  2. CYCLOPHOSPHAMIDE. [Suspect]
     Active Substance: CYCLOPHOSPHAMIDE
     Indication: B-CELL LYMPHOMA
     Dosage: 1 LINE OF THERAPY, 5 CYCLES
     Route: 065
  3. DOXORUBICIN [Suspect]
     Active Substance: DOXORUBICIN
     Indication: B-CELL LYMPHOMA
     Dosage: 3 LINE OF THERAPY
     Route: 065
  4. MABTHERA [Suspect]
     Active Substance: RITUXIMAB
     Indication: B-CELL LYMPHOMA
     Route: 065
  5. CYCLOPHOSPHAMIDE. [Suspect]
     Active Substance: CYCLOPHOSPHAMIDE
     Dosage: 3 LINE OF THERAPY
     Route: 065
  6. VINCRISTINE [Suspect]
     Active Substance: VINCRISTINE
     Dosage: 3 LINE OF THERAPY
     Route: 065
  7. PREDNISOLONE. [Suspect]
     Active Substance: PREDNISOLONE
     Indication: B-CELL LYMPHOMA
     Dosage: 1 LINE OF THERAPY, 5 CYCLES
     Route: 065
  8. PREDNISOLONE. [Suspect]
     Active Substance: PREDNISOLONE
     Dosage: 3 LINE OF THERAPY
     Route: 065

REACTIONS (6)
  - Drug intolerance [Unknown]
  - Thrombocytopenia [Unknown]
  - Upper respiratory tract infection [Unknown]
  - Rash [Unknown]
  - Angioedema [Unknown]
  - Neutropenia [Unknown]
